FAERS Safety Report 23246925 (Version 1)
Quarter: 2023Q4

REPORT INFORMATION
  Report Type: Spontaneous
  Country: ES (occurrence: ES)
  Receive Date: 20231130
  Receipt Date: 20231130
  Transmission Date: 20240110
  Serious: Yes (Other)
  Sender: FDA-Public Use
  Company Number: None

PATIENT
  Age: 73 Year
  Sex: Female

DRUGS (8)
  1. DIAZEPAM [Suspect]
     Active Substance: DIAZEPAM
     Indication: Sciatica
     Dosage: DIAZEPAM 5 MG; 1C/12 H (SI SOMNOLENCIA SOLO NOCTURNO) DURANTE 10 DIAS
     Route: 050
     Dates: start: 20231112
  2. ASPIRIN [Concomitant]
     Active Substance: ASPIRIN
     Indication: Product used for unknown indication
  3. CAPTOR 37,5 MG/325 MG COMPRIMIDOS EFG [Concomitant]
     Indication: Product used for unknown indication
  4. TRULICITY 1,5 mg SOLUCION INYECTABLE EN PLUMA PRECARGADA, 4 plumas ... [Concomitant]
     Indication: Product used for unknown indication
     Dosage: 4 PRE-FILLED PENS
  5. TRULICITY 1,5 mg SOLUCION INYECTABLE EN PLUMA PRECARGADA, 4 plumas ... [Concomitant]
  6. NOVOMIX 30 FLEXPEN 100 U/ML SUSPENSION INYECTABLE EN UNA PLUMA PREC... [Concomitant]
     Indication: Product used for unknown indication
     Dosage: SUSPENSION FOR INJECTION IN A PRE-FILL PENS, 5 PREFILLED PENS OF 3ML
  7. ANAGASTRA 40 mg COMPRIMIDOS GASTRORRESISTENTES [Concomitant]
     Indication: Product used for unknown indication
  8. FUROSEMIDE [Concomitant]
     Active Substance: FUROSEMIDE
     Indication: Product used for unknown indication

REACTIONS (1)
  - Hallucination [Unknown]

NARRATIVE: CASE EVENT DATE: 20231114
